FAERS Safety Report 9338287 (Version 1)
Quarter: 2013Q2

REPORT INFORMATION
  Report Type: Spontaneous
  Country: US (occurrence: None)
  Receive Date: 20130605
  Receipt Date: 20130605
  Transmission Date: 20140414
  Serious: Yes (Other)
  Sender: FDA-Public Use
  Company Number: None

PATIENT
  Age: 80 Year
  Sex: Female

DRUGS (1)
  1. LIDODERM TOPICAL PATCH [Suspect]
     Dosage: PRIOR TO 5/20/13 TOO 5/23/13 TOPICALLY TO LOWER BACK ?FREQUENCE- ON 12 HR OFF 12 HR
     Route: 061
     Dates: start: 20130520, end: 20130523

REACTIONS (2)
  - Application site urticaria [None]
  - Application site erythema [None]
